FAERS Safety Report 6138271-6 (Version None)
Quarter: 2009Q1

REPORT INFORMATION
  Report Type: 
  Country: None (occurrence: None)
  Receive Date: 20090331
  Receipt Date: 20090326
  Transmission Date: 20090719
  Serious: Yes (Other)
  Sender: FDA-Public Use
  Company Number: B0566943A

PATIENT
  Age: 29 Year
  Sex: Female

DRUGS (3)
  1. SERETIDE [Suspect]
     Indication: DRUG USE FOR UNKNOWN INDICATION
     Route: 055
  2. HUSCODE [Concomitant]
     Route: 048
  3. FLAVERIC [Concomitant]
     Route: 048

REACTIONS (5)
  - ASTHENIA [None]
  - HYPOAESTHESIA [None]
  - HYPOKALAEMIA [None]
  - OEDEMA [None]
  - PERIPHERAL COLDNESS [None]
